FAERS Safety Report 12410177 (Version 1)
Quarter: 2016Q2

REPORT INFORMATION
  Report Type: Spontaneous
  Country: US (occurrence: None)
  Receive Date: 20160526
  Receipt Date: 20160526
  Transmission Date: 20160815
  Serious: Yes (Life-Threatening, Hospitalization, Other)
  Sender: FDA-Public Use
  Company Number: None

PATIENT
  Age: 32 Year
  Sex: Female
  Weight: 52.16 kg

DRUGS (1)
  1. MIRENA [Suspect]
     Active Substance: LEVONORGESTREL

REACTIONS (5)
  - Vaginal haemorrhage [None]
  - Placenta accreta [None]
  - Visual impairment [None]
  - Complication of delivery [None]
  - Pregnancy with contraceptive device [None]

NARRATIVE: CASE EVENT DATE: 20091007
